FAERS Safety Report 8421237-0 (Version None)
Quarter: 2012Q2

REPORT INFORMATION
  Report Type: 
  Country: None (occurrence: None)
  Receive Date: 20120608
  Receipt Date: 20120529
  Transmission Date: 20120825
  Serious: Yes (Hospitalization)
  Sender: FDA-Public Use
  Company Number: US-JNJFOC-20120519982

PATIENT
  Sex: Male

DRUGS (4)
  1. ALL OTHER THERAPEUTIC PRODUCTS [Concomitant]
     Indication: ATRIAL FIBRILLATION
     Route: 065
  2. ZOFRAN [Concomitant]
     Indication: VOMITING
     Route: 065
  3. ZYTIGA [Suspect]
     Indication: PROSTATE CANCER
     Route: 048
  4. ZOFRAN [Concomitant]
     Indication: NAUSEA
     Route: 065

REACTIONS (1)
  - ANAEMIA [None]
